FAERS Safety Report 4663958-1 (Version None)
Quarter: 2005Q2

REPORT INFORMATION
  Report Type: 
  Country: None (occurrence: None)
  Receive Date: 20050429
  Receipt Date: 20050322
  Transmission Date: 20051028
  Serious: No
  Sender: FDA-Public Use
  Company Number: CLOF-10005

PATIENT
  Age: 7 Year
  Sex: Male

DRUGS (2)
  1. CLOLAR [Suspect]
     Indication: ACUTE LYMPHOCYTIC LEUKAEMIA
     Dates: start: 20050321, end: 20050325
  2. MORPHINE SULFATE [Concomitant]

REACTIONS (1)
  - HYPOTENSION [None]
